FAERS Safety Report 19543537 (Version 1)
Quarter: 2021Q3

REPORT INFORMATION
  Report Type: Spontaneous
  Country: GB (occurrence: GB)
  Receive Date: 20210713
  Receipt Date: 20210713
  Transmission Date: 20211014
  Serious: Yes (Hospitalization)
  Sender: FDA-Public Use
  Company Number: GB-MYLANLABS-2021M1042333

PATIENT
  Age: 30 Year
  Sex: Female

DRUGS (12)
  1. FENTANYL. [Suspect]
     Active Substance: FENTANYL
     Dosage: 2 MICROGRAMS.ML?1
     Route: 008
  2. BUPIVACAINE. [Suspect]
     Active Substance: BUPIVACAINE
     Dosage: 5 MILLILITER, 0.25%
     Route: 008
  3. SYNTOCINON [Suspect]
     Active Substance: OXYTOCIN
     Indication: LABOUR INDUCTION
     Dosage: UNK
     Route: 065
  4. GELATIN [Suspect]
     Active Substance: GELATIN
     Indication: BLOOD PRESSURE MANAGEMENT
     Dosage: 500 MILLILITER
     Route: 065
  5. BUPIVACAINE. [Suspect]
     Active Substance: BUPIVACAINE
     Indication: ANAESTHESIA
     Dosage: 2.5 MILLILITER, 0.5%
     Route: 008
  6. BUPIVACAINE. [Suspect]
     Active Substance: BUPIVACAINE
     Dosage: 10 MILLILITER, 0.125%
     Route: 008
  7. EPHEDRINE. [Suspect]
     Active Substance: EPHEDRINE
     Indication: HYPOTENSION
     Dosage: 6 MILLIGRAM
     Route: 065
  8. PHENYLEPHRINE [Suspect]
     Active Substance: PHENYLEPHRINE HYDROCHLORIDE
     Indication: BLOOD PRESSURE MANAGEMENT
     Dosage: 50 MICROGRAM, 2 BOLUSES
     Route: 065
  9. BENZYLPENICILLIN [Suspect]
     Active Substance: PENICILLIN G
     Indication: PRODUCT USED FOR UNKNOWN INDICATION
     Dosage: UNK
     Route: 042
  10. FENTANYL. [Suspect]
     Active Substance: FENTANYL
     Indication: ANAESTHESIA
     Dosage: 100 MICROGRAM
     Route: 008
  11. RINGERS LACTATE [Suspect]
     Active Substance: CALCIUM CHLORIDE\POTASSIUM CHLORIDE\SODIUM LACTATE
     Indication: HYPOTENSION
     Dosage: 1000 MILLILITER
     Route: 040
  12. FOLIC ACID. [Suspect]
     Active Substance: FOLIC ACID
     Indication: PROPHYLAXIS
     Dosage: UNK
     Route: 065

REACTIONS (5)
  - Hypotension [Recovered/Resolved]
  - Normal newborn [Recovered/Resolved]
  - Tachycardia [Recovered/Resolved]
  - Maternal exposure during pregnancy [Recovered/Resolved]
  - Cough [Recovered/Resolved]
